FAERS Safety Report 10592321 (Version 1)
Quarter: 2014Q4

REPORT INFORMATION
  Report Type: Spontaneous
  Country: US (occurrence: None)
  Receive Date: 20141117
  Receipt Date: 20141117
  Transmission Date: 20150529
  Serious: Yes (Hospitalization, Other)
  Sender: FDA-Public Use
  Company Number: 2014NUEUSA00403

PATIENT
  Age: 90 Year
  Sex: Female

DRUGS (5)
  1. NUEDEXTA [Suspect]
     Active Substance: DEXTROMETHORPHAN HYDROBROMIDE\QUINIDINE SULFATE
     Indication: AFFECT LABILITY
     Dosage: 1 CAP
     Dates: start: 20140924
  2. LEXAPRO [Concomitant]
     Active Substance: ESCITALOPRAM OXALATE
  3. RISPERDAL [Concomitant]
     Active Substance: RISPERIDONE
  4. TRAZODONE [Concomitant]
     Active Substance: TRAZODONE HYDROCHLORIDE
  5. NITRO (GLYCERYL TRINITRATE) [Concomitant]

REACTIONS (2)
  - Aggression [None]
  - Atrial fibrillation [None]

NARRATIVE: CASE EVENT DATE: 20141008
